FAERS Safety Report 7458868-0 (Version None)
Quarter: 2011Q2

REPORT INFORMATION
  Report Type: 
  Country: None (occurrence: None)
  Receive Date: 20110504
  Receipt Date: 20110425
  Transmission Date: 20111010
  Serious: Yes (Hospitalization)
  Sender: FDA-Public Use
  Company Number: PHHY2011LT05982

PATIENT
  Sex: Female

DRUGS (7)
  1. AZATHIOPRINE [Concomitant]
     Dosage: 50 MG,DAILY
     Dates: start: 20110206
  2. FUROSEMID ^DAK^ [Concomitant]
     Dosage: 20 MG,DAILY
     Dates: start: 20110206
  3. VEROSPIRON [Concomitant]
     Dosage: 50 MG, DAILY
     Dates: start: 20110206
  4. PREDNISOLONE [Concomitant]
     Dosage: 40 MG, DAILY
  5. PREDNISOLONE [Concomitant]
     Dosage: 20 MG, DAILY
     Dates: start: 20110206
  6. GLEEVEC [Suspect]
     Dosage: 400 MG, DAILY
     Route: 048
     Dates: end: 20110206
  7. GLEEVEC [Suspect]
     Indication: CHRONIC MYELOID LEUKAEMIA
     Dosage: 400 MG, UNK
     Route: 048
     Dates: start: 20100309, end: 20101214

REACTIONS (9)
  - PERICARDITIS [None]
  - GAMMA-GLUTAMYLTRANSFERASE INCREASED [None]
  - AUTOIMMUNE HEPATITIS [None]
  - HAEMODYNAMIC INSTABILITY [None]
  - ALANINE AMINOTRANSFERASE INCREASED [None]
  - BLOOD PRESSURE DECREASED [None]
  - ASPARTATE AMINOTRANSFERASE INCREASED [None]
  - TRANSAMINASES INCREASED [None]
  - OEDEMA PERIPHERAL [None]
